FAERS Safety Report 25324406 (Version 2)
Quarter: 2025Q2

REPORT INFORMATION
  Report Type: Spontaneous
  Country: US (occurrence: US)
  Receive Date: 20250516
  Receipt Date: 20250617
  Transmission Date: 20250716
  Serious: Yes (Hospitalization, Other)
  Sender: BRISTOL-MYERS SQUIBB COMPANY
  Company Number: US-BRISTOL-MYERS SQUIBB COMPANY-2025-069288

PATIENT
  Age: 82 Year
  Sex: Female

DRUGS (5)
  1. ELIQUIS [Suspect]
     Active Substance: APIXABAN
     Indication: Product used for unknown indication
     Dates: end: 20250502
  2. ELIQUIS [Suspect]
     Active Substance: APIXABAN
  3. TYVASO DPI [Suspect]
     Active Substance: TREPROSTINIL
     Indication: Pulmonary arterial hypertension
     Dosage: QID
     Route: 055
     Dates: start: 202501
  4. TYVASO DPI [Suspect]
     Active Substance: TREPROSTINIL
     Route: 055
     Dates: start: 202405
  5. TYVASO DPI [Suspect]
     Active Substance: TREPROSTINIL
     Dosage: 1- 48 ?G IN AM, 1- 64 ?G FOR THE 2ND DOSE, THEN 1- 48 ?G FOR AFTERNOON, AND 1- 48 ?G FOR EVENING DOS
     Route: 055
     Dates: start: 2025

REACTIONS (5)
  - Gastrointestinal haemorrhage [Unknown]
  - Dyspnoea [Unknown]
  - Diverticulitis [Unknown]
  - Headache [Unknown]
  - Decreased appetite [Unknown]

NARRATIVE: CASE EVENT DATE: 20250101
